FAERS Safety Report 25081324 (Version 2)
Quarter: 2025Q1

REPORT INFORMATION
  Report Type: Spontaneous
  Country: PT (occurrence: PT)
  Receive Date: 20250316
  Receipt Date: 20250324
  Transmission Date: 20250409
  Serious: Yes (Hospitalization, Other)
  Sender: AUROBINDO
  Company Number: PT-KERNPHARMA-202500655

PATIENT
  Age: 77 Year
  Sex: Female

DRUGS (2)
  1. ASPIRIN [Suspect]
     Active Substance: ASPIRIN
     Indication: Product used for unknown indication
     Route: 065
  2. CLOPIDOGREL [Suspect]
     Active Substance: CLOPIDOGREL BISULFATE
     Indication: Product used for unknown indication
     Route: 065

REACTIONS (5)
  - Diverticulum intestinal haemorrhagic [Unknown]
  - Haematochezia [Unknown]
  - Large intestinal haemorrhage [Unknown]
  - Normochromic normocytic anaemia [Unknown]
  - Diverticulitis [Unknown]
